FAERS Safety Report 17658214 (Version 1)
Quarter: 2020Q2

REPORT INFORMATION
  Report Type: Spontaneous
  Country: GB (occurrence: GB)
  Receive Date: 20200412
  Receipt Date: 20200412
  Transmission Date: 20200713
  Serious: Yes (Life-Threatening, Hospitalization, Other)
  Sender: FDA-Public Use
  Company Number: GB-DEXPHARM-20200323

PATIENT
  Age: 33 Year
  Sex: Female

DRUGS (3)
  1. MIVACURIUM [Suspect]
     Active Substance: MIVACURIUM
  2. CHLORHEXIDINE [Suspect]
     Active Substance: CHLORHEXIDINE
  3. ATRACURIUM [Suspect]
     Active Substance: ATRACURIUM

REACTIONS (2)
  - Cardiac arrest [Recovered/Resolved]
  - Hypotension [Recovered/Resolved]
